FAERS Safety Report 14487954 (Version 1)
Quarter: 2018Q1

REPORT INFORMATION
  Report Type: Report from Study
  Country: US (occurrence: US)
  Receive Date: 20180205
  Receipt Date: 20180205
  Transmission Date: 20180509
  Serious: Yes (Hospitalization)
  Sender: FDA-Public Use
  Company Number: US-BRISTOL-MYERS SQUIBB COMPANY-BMS-2018-008928

PATIENT
  Age: 72 Year
  Sex: Male
  Weight: 140.9 kg

DRUGS (2)
  1. IPILIMUMAB [Suspect]
     Active Substance: IPILIMUMAB
     Indication: PROSTATE CANCER
     Dosage: 1 MG/KG, UNK
     Route: 042
     Dates: start: 20171219
  2. NIVOLUMAB [Suspect]
     Active Substance: NIVOLUMAB
     Indication: PROSTATE CANCER
     Dosage: 240 MG, Q2WK
     Route: 042
     Dates: start: 20171219

REACTIONS (1)
  - Pain [Unknown]

NARRATIVE: CASE EVENT DATE: 20171228
